FAERS Safety Report 21121587 (Version 1)
Quarter: 2022Q3

REPORT INFORMATION
  Report Type: Spontaneous
  Country: US (occurrence: US)
  Receive Date: 20220722
  Receipt Date: 20220722
  Transmission Date: 20221027
  Serious: Yes (Hospitalization)
  Sender: FDA-Public Use
  Company Number: US-NOVARTISTESTPH-NVSC2022US158472

PATIENT

DRUGS (1)
  1. ZIEXTENZO [Suspect]
     Active Substance: PEGFILGRASTIM-BMEZ
     Indication: Neutropenia
     Dosage: UNK, 6 MG IN 6 ML
     Route: 065

REACTIONS (4)
  - Febrile neutropenia [Unknown]
  - Device difficult to use [Unknown]
  - Product primary packaging issue [Unknown]
  - Needle issue [Unknown]
